APPROVED DRUG PRODUCT: MOMETASONE FUROATE
Active Ingredient: MOMETASONE FUROATE
Strength: 0.1%
Dosage Form/Route: CREAM;TOPICAL
Application: A076171 | Product #001
Applicant: FOUGERA PHARMACEUTICALS INC
Approved: Apr 8, 2005 | RLD: No | RS: No | Type: DISCN